FAERS Safety Report 18619685 (Version 2)
Quarter: 2021Q1

REPORT INFORMATION
  Report Type: Report from Study
  Country: FR (occurrence: FR)
  Receive Date: 20201215
  Receipt Date: 20210104
  Transmission Date: 20210419
  Serious: Yes (Other)
  Sender: FDA-Public Use
  Company Number: FR-EXELIXIS-XL18420035825

PATIENT

DRUGS (14)
  1. LOPERAMIDE [Concomitant]
     Active Substance: LOPERAMIDE
  2. XL184 [Suspect]
     Active Substance: CABOZANTINIB
     Dosage: 20 MG, QD
     Route: 048
     Dates: start: 20200331, end: 20200427
  3. XL184 [Suspect]
     Active Substance: CABOZANTINIB
     Dosage: 40 MG, QD
     Route: 048
     Dates: start: 20200505, end: 20200514
  4. BETAMETHASONE. [Concomitant]
     Active Substance: BETAMETHASONE
  5. ALFUZOSINE [Concomitant]
     Active Substance: ALFUZOSIN HYDROCHLORIDE
  6. LATANOPROST. [Concomitant]
     Active Substance: LATANOPROST
  7. XL184 [Suspect]
     Active Substance: CABOZANTINIB
     Indication: HEPATOCELLULAR CARCINOMA
     Dosage: 60 MG, QD
     Route: 048
     Dates: start: 20200303, end: 20200317
  8. DESLORATADINE. [Concomitant]
     Active Substance: DESLORATADINE
  9. ANETHOLTRITHIONUM [Concomitant]
  10. XL184 [Suspect]
     Active Substance: CABOZANTINIB
     Dosage: 20 MG, QD
     Route: 048
     Dates: start: 20200526, end: 20200723
  11. HYLO CONFORT [Concomitant]
  12. METOCLOPRAMIDE. [Concomitant]
     Active Substance: METOCLOPRAMIDE
  13. DIOSMECTITE [Concomitant]
     Active Substance: MONTMORILLONITE
  14. BENZOATEO DE BENCILO [Concomitant]
     Active Substance: BENZYL BENZOATE

REACTIONS (2)
  - Blood bilirubin increased [Recovered/Resolved]
  - Blood bilirubin increased [Recovered/Resolved]

NARRATIVE: CASE EVENT DATE: 20200525
